FAERS Safety Report 11167877 (Version 3)
Quarter: 2015Q3

REPORT INFORMATION
  Report Type: Spontaneous
  Country: US (occurrence: US)
  Receive Date: 20150605
  Receipt Date: 20150805
  Transmission Date: 20151125
  Serious: Yes (Hospitalization)
  Sender: FDA-Public Use
  Company Number: US-PFIZER INC-2015190767

PATIENT
  Age: 63 Year
  Sex: Female
  Weight: 66 kg

DRUGS (1)
  1. LYRICA [Suspect]
     Active Substance: PREGABALIN
     Dosage: 75 MG, 2X/DAY
     Dates: start: 2014

REACTIONS (7)
  - Product use issue [Unknown]
  - Dysphagia [Unknown]
  - Dizziness [Unknown]
  - Foreign body [Unknown]
  - Somnolence [Unknown]
  - Drug tolerance decreased [Unknown]
  - Feeling abnormal [Unknown]
